FAERS Safety Report 16123770 (Version 1)
Quarter: 2019Q1

REPORT INFORMATION
  Report Type: Spontaneous
  Country: DE (occurrence: DE)
  Receive Date: 20190327
  Receipt Date: 20190327
  Transmission Date: 20190418
  Serious: Yes (Disabling)
  Sender: FDA-Public Use
  Company Number: DE-MYLANLABS-2019M1027514

PATIENT
  Sex: Male

DRUGS (4)
  1. VALSARTAN HEXAL [Suspect]
     Active Substance: VALSARTAN
     Indication: HYPERTENSION
     Dosage: UNK
     Dates: start: 20130416
  2. VALSARTAN 1A PHARMA [Suspect]
     Active Substance: VALSARTAN
     Indication: HYPERTENSION
     Dosage: UNK
     Dates: start: 201412
  3. VALSARTAN. [Suspect]
     Active Substance: VALSARTAN
     Indication: HYPERTENSION
     Dosage: UNK
     Dates: start: 20180102
  4. VALSARTAN DURA 160 MG FILMTABLETTEN [Suspect]
     Active Substance: VALSARTAN
     Indication: HYPERTENSION
     Dosage: UNK
     Dates: start: 20180718

REACTIONS (10)
  - Lymphoedema [Unknown]
  - Thyroid disorder [Unknown]
  - Psoriasis [Unknown]
  - Gait disturbance [Unknown]
  - Spinal disorder [Unknown]
  - Gout [Unknown]
  - Musculoskeletal discomfort [Unknown]
  - Lyme disease [Unknown]
  - Arrhythmia [Unknown]
  - Arthropathy [Unknown]
